APPROVED DRUG PRODUCT: ERGOCALCIFEROL
Active Ingredient: ERGOCALCIFEROL
Strength: 50,000 IU
Dosage Form/Route: CAPSULE;ORAL
Application: A091004 | Product #001
Applicant: SIGMAPHARM LABORATORIES LLC
Approved: Jul 14, 2010 | RLD: No | RS: No | Type: DISCN